FAERS Safety Report 10057231 (Version 1)
Quarter: 2014Q2

REPORT INFORMATION
  Report Type: Spontaneous
  Country: US (occurrence: US)
  Receive Date: 20140403
  Receipt Date: 20140403
  Transmission Date: 20141212
  Serious: No
  Sender: FDA-Public Use
  Company Number: US-TEVA-473123USA

PATIENT
  Age: 34 Year
  Sex: Female
  Weight: 44.49 kg

DRUGS (7)
  1. PARAGARD 380A [Suspect]
     Indication: CONTRACEPTION
     Route: 015
     Dates: start: 20131106, end: 20140315
  2. FLUDROCORTISONE ACETATE [Concomitant]
     Indication: HYPOTENSION
  3. MIDODRINE [Concomitant]
     Indication: HYPOTENSION
  4. PROPRANOLOL [Concomitant]
     Indication: PALPITATIONS
  5. PAXIL [Concomitant]
     Indication: PALPITATIONS
  6. VITAMIN D [Concomitant]
     Indication: VITAMIN D DEFICIENCY
  7. PROBIOTICS [Concomitant]
     Indication: DYSPEPSIA

REACTIONS (1)
  - Device expulsion [Recovered/Resolved]
